FAERS Safety Report 9824150 (Version 2)
Quarter: 2014Q1

REPORT INFORMATION
  Report Type: Spontaneous
  Country: US (occurrence: US)
  Receive Date: 20140116
  Receipt Date: 20140303
  Transmission Date: 20141002
  Serious: Yes (Other)
  Sender: FDA-Public Use
  Company Number: US-GLAXOSMITHKLINE-A1056174A

PATIENT
  Age: 76 Year
  Sex: Female

DRUGS (9)
  1. ADVAIR [Suspect]
     Indication: CHRONIC OBSTRUCTIVE PULMONARY DISEASE
     Dosage: 1PUFF TWICE PER DAY
     Route: 055
     Dates: start: 201003
  2. SPIRIVA [Concomitant]
  3. OXYGEN [Concomitant]
  4. SIMVASTATIN [Concomitant]
  5. BABY ASPIRIN [Concomitant]
  6. AMBIEN [Concomitant]
  7. VITAMINS [Concomitant]
  8. B-12 [Concomitant]
  9. VITAMIN C [Concomitant]

REACTIONS (5)
  - Leukoplakia oral [Recovering/Resolving]
  - Pulmonary congestion [Recovering/Resolving]
  - Dry mouth [Recovering/Resolving]
  - Dyspnoea [Recovering/Resolving]
  - Product quality issue [Unknown]
